FAERS Safety Report 9144618 (Version 1)
Quarter: 2013Q1

REPORT INFORMATION
  Report Type: Report from Study
  Country: KR (occurrence: KR)
  Receive Date: 20130306
  Receipt Date: 20130306
  Transmission Date: 20140127
  Serious: Yes (Other)
  Sender: FDA-Public Use
  Company Number: KR-BAXTER-2013BAX008685

PATIENT
  Sex: 0

DRUGS (2)
  1. SUPRANE [Suspect]
     Indication: GENERAL ANAESTHESIA
  2. SUPRANE [Suspect]
     Indication: GASTRECTOMY

REACTIONS (1)
  - Bradycardia [Recovered/Resolved]
